FAERS Safety Report 20174998 (Version 1)
Quarter: 2021Q4

REPORT INFORMATION
  Report Type: Spontaneous
  Country: US (occurrence: None)
  Receive Date: 20211209
  Receipt Date: 20211209
  Transmission Date: 20220303
  Serious: Yes (Other)
  Sender: FDA-Public Use
  Company Number: None

PATIENT
  Age: 73 Year
  Sex: Male
  Weight: 108 kg

DRUGS (11)
  1. SOTROVIMAB [Suspect]
     Active Substance: SOTROVIMAB
     Indication: COVID-19
     Dosage: OTHER FREQUENCY : 1 DOSE;?
     Route: 042
     Dates: start: 20211202, end: 20211202
  2. Advair 250mcg/50mcg [Concomitant]
  3. ALFUZOSIN [Concomitant]
     Active Substance: ALFUZOSIN
  4. ASA EC 81mg [Concomitant]
  5. ATORVASTATIN [Concomitant]
     Active Substance: ATORVASTATIN
  6. BUMETANIDE [Concomitant]
     Active Substance: BUMETANIDE
  7. METOPROLOL TARTRATE [Concomitant]
     Active Substance: METOPROLOL TARTRATE
  8. SILDENAFIL [Concomitant]
     Active Substance: SILDENAFIL
  9. APAP 650mg [Concomitant]
  10. guaifenesin/dextromethorphan 200mg/20mg [Concomitant]
  11. ENOXAPARIN [Concomitant]
     Active Substance: ENOXAPARIN

REACTIONS (8)
  - Pulmonary oedema [None]
  - Pneumonitis [None]
  - Pleural effusion [None]
  - Hypervolaemia [None]
  - Oxygen saturation decreased [None]
  - Feeling jittery [None]
  - Body temperature increased [None]
  - Chills [None]

NARRATIVE: CASE EVENT DATE: 20211203
